FAERS Safety Report 26023273 (Version 2)
Quarter: 2025Q4

REPORT INFORMATION
  Report Type: Report from Study
  Country: EG (occurrence: EG)
  Receive Date: 20251110
  Receipt Date: 20251209
  Transmission Date: 20260118
  Serious: Yes (Other)
  Sender: BIOGEN
  Company Number: EG-BIOGEN-2089745

PATIENT
  Age: 38 Year
  Sex: Female
  Weight: 55 kg

DRUGS (4)
  1. TYSABRI [Suspect]
     Active Substance: NATALIZUMAB
     Indication: Multiple sclerosis
     Dosage: EVERY 1.5 MONTHS
     Dates: start: 202304
  2. VITAMIN D [Concomitant]
     Active Substance: VITAMIN D NOS
     Indication: Vitamin supplementation
  3. Tritace 2.5 [Concomitant]
     Indication: Hypertension
  4. OMEGA-3 ACIDS [Concomitant]
     Active Substance: OMEGA-3 FATTY ACIDS
     Indication: Vitamin supplementation

REACTIONS (3)
  - Pulmonary fibrosis [Recovered/Resolved]
  - Increased appetite [Recovered/Resolved]
  - Weight increased [Recovered/Resolved]

NARRATIVE: CASE EVENT DATE: 20250101
